FAERS Safety Report 6402528-1 (Version None)
Quarter: 2009Q4

REPORT INFORMATION
  Report Type: 
  Country: None (occurrence: None)
  Receive Date: 20091009
  Receipt Date: 20090930
  Transmission Date: 20100525
  Serious: Yes (Life-Threatening, Hospitalization, Other)
  Sender: FDA-Public Use
  Company Number: ADR34532009

PATIENT
  Age: 68 Year
  Sex: Male

DRUGS (11)
  1. CIPROFLOXACIN [Suspect]
     Indication: INFECTION
     Dosage: 1 G, ORAL
     Route: 048
     Dates: start: 20090213, end: 20090216
  2. ADCAL-D3 (CALCIUM CARBONATE CHOLECALCIFEROL) [Concomitant]
  3. ALLOPURINOL [Concomitant]
  4. AMITRIPTYLINE [Concomitant]
  5. ASPIRIN [Concomitant]
  6. DEXAMETHASONE [Concomitant]
  7. DOMPERIDONE [Concomitant]
  8. GRANISETRON HCL [Concomitant]
  9. OMEPRAZOLE [Concomitant]
  10. THALIDOMIDE [Concomitant]
  11. ACETAMINOPHEN W/ CODEINE [Concomitant]

REACTIONS (2)
  - GRAND MAL CONVULSION [None]
  - UNRESPONSIVE TO STIMULI [None]
